FAERS Safety Report 25182676 (Version 1)
Quarter: 2025Q2

REPORT INFORMATION
  Report Type: Spontaneous
  Country: CA (occurrence: CA)
  Receive Date: 20250410
  Receipt Date: 20250410
  Transmission Date: 20250716
  Serious: Yes (Death, Other)
  Sender: SANDOZ
  Company Number: CA-SANDOZ-SDZ2024CA107886

PATIENT
  Sex: Female

DRUGS (219)
  1. ADALIMUMAB [Suspect]
     Active Substance: ADALIMUMAB
     Route: 042
  2. ADALIMUMAB [Suspect]
     Active Substance: ADALIMUMAB
     Route: 048
  3. ADALIMUMAB [Suspect]
     Active Substance: ADALIMUMAB
     Indication: Product used for unknown indication
     Route: 058
  4. ADALIMUMAB [Suspect]
     Active Substance: ADALIMUMAB
     Route: 058
  5. ADALIMUMAB [Suspect]
     Active Substance: ADALIMUMAB
     Indication: Product used for unknown indication
     Route: 065
  6. ALENDRONATE SODIUM [Suspect]
     Active Substance: ALENDRONATE SODIUM
     Indication: Product used for unknown indication
     Route: 065
  7. ALENDRONIC ACID [Suspect]
     Active Substance: ALENDRONIC ACID
     Indication: Product used for unknown indication
     Route: 016
  8. ALENDRONIC ACID [Suspect]
     Active Substance: ALENDRONIC ACID
     Route: 016
  9. ALENDRONIC ACID [Suspect]
     Active Substance: ALENDRONIC ACID
     Route: 048
  10. APREMILAST [Suspect]
     Active Substance: APREMILAST
     Route: 065
  11. APREMILAST [Suspect]
     Active Substance: APREMILAST
     Route: 065
  12. APREMILAST [Suspect]
     Active Substance: APREMILAST
     Route: 065
  13. APREMILAST [Suspect]
     Active Substance: APREMILAST
     Indication: Product used for unknown indication
     Dosage: 6.0 MG, QD
     Route: 065
  14. APREMILAST [Suspect]
     Active Substance: APREMILAST
     Dosage: 6.0 MG, QD
     Route: 065
  15. APREMILAST [Suspect]
     Active Substance: APREMILAST
     Dosage: 6.0 MG, QD
     Route: 065
  16. ACETAMINOPHEN [Suspect]
     Active Substance: ACETAMINOPHEN
     Indication: Product used for unknown indication
     Route: 065
  17. ACETAMINOPHEN [Suspect]
     Active Substance: ACETAMINOPHEN
     Route: 065
  18. BIOFLAVONOIDS [Suspect]
     Active Substance: BIOFLAVONOIDS
     Indication: Product used for unknown indication
     Route: 065
  19. CELECOXIB [Suspect]
     Active Substance: CELECOXIB
     Dosage: UNK, 1.0 DOSAGE FORMS
     Route: 058
  20. CELECOXIB [Suspect]
     Active Substance: CELECOXIB
     Indication: Product used for unknown indication
     Dosage: 2.0 DOSAGE FORMS
     Route: 048
  21. CELECOXIB [Suspect]
     Active Substance: CELECOXIB
     Dosage: 200 MG, QD
     Route: 065
  22. CELECOXIB [Suspect]
     Active Substance: CELECOXIB
     Route: 058
  23. CETIRIZINE [Suspect]
     Active Substance: CETIRIZINE HYDROCHLORIDE
     Indication: Product used for unknown indication
     Dosage: 10.0 MG, QD
     Route: 048
  24. CETIRIZINE [Suspect]
     Active Substance: CETIRIZINE HYDROCHLORIDE
     Route: 065
  25. CETIRIZINE [Suspect]
     Active Substance: CETIRIZINE HYDROCHLORIDE
     Route: 065
  26. CETIRIZINE [Suspect]
     Active Substance: CETIRIZINE HYDROCHLORIDE
     Route: 048
  27. CLONIDINE HYDROCHLORIDE [Suspect]
     Active Substance: CLONIDINE HYDROCHLORIDE
     Indication: Product used for unknown indication
     Route: 065
  28. CALCIUM [Suspect]
     Active Substance: CALCIUM
     Indication: Product used for unknown indication
     Route: 065
  29. CALCIUM CARBONATE [Suspect]
     Active Substance: CALCIUM CARBONATE
     Indication: Product used for unknown indication
     Route: 016
  30. CALCIUM CITRATE [Suspect]
     Active Substance: CALCIUM CITRATE
     Indication: Product used for unknown indication
     Route: 065
  31. CALCIUM GLUBIONATE [Suspect]
     Active Substance: CALCIUM GLUBIONATE
     Indication: Product used for unknown indication
     Route: 065
  32. CERTOLIZUMAB PEGOL [Suspect]
     Active Substance: CERTOLIZUMAB PEGOL
     Dosage: 1 DF, QD
     Route: 058
  33. CERTOLIZUMAB PEGOL [Suspect]
     Active Substance: CERTOLIZUMAB PEGOL
     Indication: Product used for unknown indication
     Route: 058
  34. CERTOLIZUMAB PEGOL [Suspect]
     Active Substance: CERTOLIZUMAB PEGOL
     Route: 058
  35. CERTOLIZUMAB PEGOL [Suspect]
     Active Substance: CERTOLIZUMAB PEGOL
     Route: 058
  36. CHLORHEXIDINE [Suspect]
     Active Substance: CHLORHEXIDINE
     Indication: Product used for unknown indication
     Route: 002
  37. CHLORHEXIDINE [Suspect]
     Active Substance: CHLORHEXIDINE
     Route: 048
  38. CHLORHEXIDINE [Suspect]
     Active Substance: CHLORHEXIDINE
     Route: 065
  39. CHLORHEXIDINE GLUCONATE [Suspect]
     Active Substance: CHLORHEXIDINE GLUCONATE
     Route: 048
  40. CHLORHEXIDINE GLUCONATE [Suspect]
     Active Substance: CHLORHEXIDINE GLUCONATE
     Indication: Product used for unknown indication
     Route: 065
  41. CIMZIA [Suspect]
     Active Substance: CERTOLIZUMAB PEGOL
     Indication: Product used for unknown indication
     Route: 058
  42. CIMZIA [Suspect]
     Active Substance: CERTOLIZUMAB PEGOL
     Dosage: UNK,1.0 DOSAGE FORMS
     Route: 058
  43. CIMZIA [Suspect]
     Active Substance: CERTOLIZUMAB PEGOL
     Route: 058
  44. CORTISONE [Suspect]
     Active Substance: CORTISONE
     Indication: Product used for unknown indication
     Route: 048
  45. CORTISONE [Suspect]
     Active Substance: CORTISONE
     Route: 058
  46. CORTISONE ACETATE [Suspect]
     Active Substance: CORTISONE ACETATE
     Route: 003
  47. CORTISONE ACETATE [Suspect]
     Active Substance: CORTISONE ACETATE
     Indication: Product used for unknown indication
     Route: 065
  48. CORTISONE ACETATE [Suspect]
     Active Substance: CORTISONE ACETATE
     Route: 048
  49. DICLOFENAC [Suspect]
     Active Substance: DICLOFENAC
     Route: 065
  50. DICLOFENAC [Suspect]
     Active Substance: DICLOFENAC
     Indication: Product used for unknown indication
     Route: 065
  51. DICLOFENAC [Suspect]
     Active Substance: DICLOFENAC
     Route: 065
  52. DICLOFENAC POTASSIUM [Suspect]
     Active Substance: DICLOFENAC POTASSIUM
     Indication: Product used for unknown indication
     Route: 065
  53. DICLOFENAC POTASSIUM [Suspect]
     Active Substance: DICLOFENAC POTASSIUM
     Route: 065
  54. DICLOFENAC SODIUM [Suspect]
     Active Substance: DICLOFENAC SODIUM
     Route: 065
  55. DICLOFENAC SODIUM [Suspect]
     Active Substance: DICLOFENAC SODIUM
     Route: 065
  56. DICLOFENAC SODIUM [Suspect]
     Active Substance: DICLOFENAC SODIUM
     Dosage: 50 MG, QD
     Route: 065
  57. DICLOFENAC SODIUM [Suspect]
     Active Substance: DICLOFENAC SODIUM
     Route: 065
  58. DICLOFENAC SODIUM [Suspect]
     Active Substance: DICLOFENAC SODIUM
     Indication: Product used for unknown indication
     Route: 065
  59. DICLOFENAC SODIUM [Suspect]
     Active Substance: DICLOFENAC SODIUM
     Route: 058
  60. DICLOFENAC SODIUM [Suspect]
     Active Substance: DICLOFENAC SODIUM
     Route: 065
  61. DICLOFENAC SODIUM [Suspect]
     Active Substance: DICLOFENAC SODIUM
     Route: 065
  62. DICLOFENAC SODIUM [Suspect]
     Active Substance: DICLOFENAC SODIUM
     Route: 065
  63. DILTIAZEM HYDROCHLORIDE [Suspect]
     Active Substance: DILTIAZEM HYDROCHLORIDE
     Indication: Product used for unknown indication
     Route: 042
  64. DIPHENHYDRAMINE HYDROCHLORIDE [Suspect]
     Active Substance: DIPHENHYDRAMINE HYDROCHLORIDE
     Indication: Product used for unknown indication
     Route: 065
  65. DESOXIMETASONE [Suspect]
     Active Substance: DESOXIMETASONE
     Indication: Product used for unknown indication
     Route: 003
  66. DESOXIMETASONE [Suspect]
     Active Substance: DESOXIMETASONE
     Route: 048
  67. DESOXIMETASONE [Suspect]
     Active Substance: DESOXIMETASONE
     Route: 003
  68. DOXYCYCLINE HYCLATE [Suspect]
     Active Substance: DOXYCYCLINE HYCLATE
     Indication: Product used for unknown indication
     Route: 065
  69. DOXYCYCLINE HYCLATE [Suspect]
     Active Substance: DOXYCYCLINE HYCLATE
     Route: 065
  70. ERELZI [Suspect]
     Active Substance: ETANERCEPT-SZZS
     Indication: Product used for unknown indication
     Route: 058
  71. ERELZI [Suspect]
     Active Substance: ETANERCEPT-SZZS
     Route: 058
  72. SULFISOMIDINE SODIUM [Suspect]
     Active Substance: SULFISOMIDINE SODIUM
     Indication: Product used for unknown indication
     Route: 065
  73. SULFISOMIDINE SODIUM [Suspect]
     Active Substance: SULFISOMIDINE SODIUM
     Route: 065
  74. ENBREL [Suspect]
     Active Substance: ETANERCEPT
     Dosage: 20.0 MG, QW
     Route: 058
  75. ENBREL [Suspect]
     Active Substance: ETANERCEPT
     Dosage: 20.0 MG, QD
     Route: 058
  76. ENBREL [Suspect]
     Active Substance: ETANERCEPT
     Dosage: 50.0 MG, QW
     Route: 058
  77. ENBREL [Suspect]
     Active Substance: ETANERCEPT
     Indication: Product used for unknown indication
     Route: 058
  78. ENTYVIO [Suspect]
     Active Substance: VEDOLIZUMAB
     Indication: Product used for unknown indication
     Route: 065
  79. ENTYVIO [Suspect]
     Active Substance: VEDOLIZUMAB
     Route: 065
  80. FOLIC ACID [Suspect]
     Active Substance: FOLIC ACID
     Route: 065
  81. FOLIC ACID [Suspect]
     Active Substance: FOLIC ACID
     Dosage: 1.0 MG, QD
     Route: 048
  82. FOLIC ACID [Suspect]
     Active Substance: FOLIC ACID
     Route: 065
  83. FOLIC ACID [Suspect]
     Active Substance: FOLIC ACID
     Route: 065
  84. FOLIC ACID [Suspect]
     Active Substance: FOLIC ACID
     Indication: Product used for unknown indication
     Route: 048
  85. FOLIC ACID [Suspect]
     Active Substance: FOLIC ACID
     Dosage: 3.0 MG, QD
     Route: 065
  86. FOLIC ACID [Suspect]
     Active Substance: FOLIC ACID
     Route: 049
  87. FOLIC ACID [Suspect]
     Active Substance: FOLIC ACID
     Route: 065
  88. FOLIC ACID [Suspect]
     Active Substance: FOLIC ACID
     Route: 065
  89. FOLIC ACID [Suspect]
     Active Substance: FOLIC ACID
     Route: 048
  90. FRAMYCETIN SULFATE [Suspect]
     Active Substance: FRAMYCETIN SULFATE
     Indication: Product used for unknown indication
     Route: 065
  91. FRAMYCETIN SULFATE [Suspect]
     Active Substance: FRAMYCETIN SULFATE
     Route: 065
  92. GOLIMUMAB [Suspect]
     Active Substance: GOLIMUMAB
     Indication: Product used for unknown indication
     Route: 065
  93. GOLIMUMAB [Suspect]
     Active Substance: GOLIMUMAB
     Route: 065
  94. GRAMICIDIN [Suspect]
     Active Substance: GRAMICIDIN
     Indication: Product used for unknown indication
     Route: 065
  95. HUMIRA [Suspect]
     Active Substance: ADALIMUMAB
     Indication: Product used for unknown indication
     Route: 058
  96. HUMIRA [Suspect]
     Active Substance: ADALIMUMAB
     Route: 058
  97. HUMIRA [Suspect]
     Active Substance: ADALIMUMAB
     Route: 058
  98. HUMIRA [Suspect]
     Active Substance: ADALIMUMAB
     Route: 058
  99. HYDROCORTISONE SODIUM SUCCINATE [Suspect]
     Active Substance: HYDROCORTISONE SODIUM SUCCINATE
     Route: 049
  100. HYDROCORTISONE SODIUM SUCCINATE [Suspect]
     Active Substance: HYDROCORTISONE SODIUM SUCCINATE
     Indication: Product used for unknown indication
     Route: 048
  101. HYDROXYCHLOROQUINE [Suspect]
     Active Substance: HYDROXYCHLOROQUINE
     Dosage: 40.0 MG, QD
     Route: 048
  102. HYDROXYCHLOROQUINE [Suspect]
     Active Substance: HYDROXYCHLOROQUINE
     Dosage: 400.0 MG, QD
     Route: 048
  103. HYDROXYCHLOROQUINE [Suspect]
     Active Substance: HYDROXYCHLOROQUINE
     Indication: Product used for unknown indication
     Dosage: 400.0 MG, QD
     Route: 058
  104. HYDROXYCHLOROQUINE [Suspect]
     Active Substance: HYDROXYCHLOROQUINE
     Route: 048
  105. HYDROXYCHLOROQUINE SULFATE [Suspect]
     Active Substance: HYDROXYCHLOROQUINE SULFATE
     Indication: Product used for unknown indication
     Dosage: 40.0 MG, QD
     Route: 050
  106. HYDROXYCHLOROQUINE SULFATE [Suspect]
     Active Substance: HYDROXYCHLOROQUINE SULFATE
     Dosage: 400.0 MG, QD
     Route: 048
  107. HYDROXYCHLOROQUINE SULFATE [Suspect]
     Active Substance: HYDROXYCHLOROQUINE SULFATE
     Dosage: 400.0 MG, QD
     Route: 048
  108. HYDROXYCHLOROQUINE SULFATE [Suspect]
     Active Substance: HYDROXYCHLOROQUINE SULFATE
     Dosage: 400.0 MG, QD
     Route: 049
  109. HYDROXYCHLOROQUINE SULFATE [Suspect]
     Active Substance: HYDROXYCHLOROQUINE SULFATE
     Dosage: 400.0 MG, QD
     Route: 065
  110. HYDROXYCHLOROQUINE SULFATE [Suspect]
     Active Substance: HYDROXYCHLOROQUINE SULFATE
     Route: 048
  111. HYDROXYCHLOROQUINE SULFATE [Suspect]
     Active Substance: HYDROXYCHLOROQUINE SULFATE
     Route: 065
  112. HYDROXYCHLOROQUINE SULFATE [Suspect]
     Active Substance: HYDROXYCHLOROQUINE SULFATE
     Route: 048
  113. IMURAN [Suspect]
     Active Substance: AZATHIOPRINE
     Indication: Product used for unknown indication
     Route: 065
  114. INFLIXIMAB [Suspect]
     Active Substance: INFLIXIMAB
     Indication: Product used for unknown indication
     Route: 065
  115. INFLIXIMAB [Suspect]
     Active Substance: INFLIXIMAB
     Route: 042
  116. ISOPROPYL ALCOHOL [Suspect]
     Active Substance: ISOPROPYL ALCOHOL
     Indication: Product used for unknown indication
     Route: 048
  117. METHOTREXATE [Suspect]
     Active Substance: METHOTREXATE
     Dosage: 15.0 MG, QD
     Route: 048
  118. METHOTREXATE [Suspect]
     Active Substance: METHOTREXATE
     Route: 048
  119. METHOTREXATE [Suspect]
     Active Substance: METHOTREXATE
     Route: 048
  120. METHOTREXATE [Suspect]
     Active Substance: METHOTREXATE
     Indication: Product used for unknown indication
     Dosage: 20.0 MG, QD
     Route: 058
  121. METHOTREXATE [Suspect]
     Active Substance: METHOTREXATE
     Dosage: 20.0 MG, QD
     Route: 065
  122. METHOTREXATE [Suspect]
     Active Substance: METHOTREXATE
     Route: 013
  123. METHOTREXATE [Suspect]
     Active Substance: METHOTREXATE
     Route: 048
  124. METHOTREXATE [Suspect]
     Active Substance: METHOTREXATE
     Route: 048
  125. METHOTREXATE [Suspect]
     Active Substance: METHOTREXATE
     Route: 065
  126. METHOTREXATE [Suspect]
     Active Substance: METHOTREXATE
     Route: 013
  127. METHOTREXATE [Suspect]
     Active Substance: METHOTREXATE
     Route: 058
  128. METHOTREXATE [Suspect]
     Active Substance: METHOTREXATE
     Route: 048
  129. METHOTREXATE [Suspect]
     Active Substance: METHOTREXATE
     Dosage: 25.0 UNK, QD
     Route: 048
  130. METHOTREXATE [Suspect]
     Active Substance: METHOTREXATE
     Route: 016
  131. METHOTREXATE [Suspect]
     Active Substance: METHOTREXATE
     Route: 048
  132. MORPHINE SULFATE [Suspect]
     Active Substance: MORPHINE SULFATE
     Indication: Product used for unknown indication
     Route: 065
  133. MYCOPHENOLATE MOFETIL [Suspect]
     Active Substance: MYCOPHENOLATE MOFETIL
     Indication: Product used for unknown indication
     Route: 065
  134. MESALAMINE [Suspect]
     Active Substance: MESALAMINE
     Indication: Product used for unknown indication
     Route: 065
  135. METHYLPREDNISOLONE SODIUM SUCCINATE [Suspect]
     Active Substance: METHYLPREDNISOLONE SODIUM SUCCINATE
     Indication: Product used for unknown indication
     Route: 048
  136. NAPROXEN SODIUM [Suspect]
     Active Substance: NAPROXEN SODIUM
     Indication: Product used for unknown indication
     Dosage: 1000.0 MG, QD
     Route: 065
  137. NAPROXEN SODIUM [Suspect]
     Active Substance: NAPROXEN SODIUM
     Dosage: 1000.0 MG, QD
     Route: 065
  138. NITROFURAZONE [Suspect]
     Active Substance: NITROFURAZONE
     Indication: Product used for unknown indication
     Route: 048
  139. NITROFURAZONE [Suspect]
     Active Substance: NITROFURAZONE
     Route: 048
  140. OXYCODONE HYDROCHLORIDE [Suspect]
     Active Substance: OXYCODONE HYDROCHLORIDE
     Indication: Product used for unknown indication
     Route: 065
  141. OXYCODONE HYDROCHLORIDE [Suspect]
     Active Substance: OXYCODONE HYDROCHLORIDE
     Route: 065
  142. ORENCIA [Suspect]
     Active Substance: ABATACEPT
     Route: 058
  143. ORENCIA [Suspect]
     Active Substance: ABATACEPT
     Dosage: 125.0 MG, QW
     Route: 058
  144. ORENCIA [Suspect]
     Active Substance: ABATACEPT
     Route: 058
  145. ORENCIA [Suspect]
     Active Substance: ABATACEPT
     Dosage: 17.86 MG, QD
     Route: 042
  146. ORENCIA [Suspect]
     Active Substance: ABATACEPT
     Dosage: 17.88 MG, QD
     Route: 065
  147. ORENCIA [Suspect]
     Active Substance: ABATACEPT
     Dosage: 18.0 MG, QD
     Route: 065
  148. ORENCIA [Suspect]
     Active Substance: ABATACEPT
     Route: 053
  149. ORENCIA [Suspect]
     Active Substance: ABATACEPT
     Indication: Product used for unknown indication
     Route: 042
  150. ORENCIA [Suspect]
     Active Substance: ABATACEPT
     Route: 042
  151. ORENCIA [Suspect]
     Active Substance: ABATACEPT
     Route: 058
  152. ORENCIA [Suspect]
     Active Substance: ABATACEPT
     Route: 065
  153. ORENCIA [Suspect]
     Active Substance: ABATACEPT
     Route: 065
  154. OTEZLA [Suspect]
     Active Substance: APREMILAST
     Route: 048
  155. OTEZLA [Suspect]
     Active Substance: APREMILAST
     Route: 065
  156. OTEZLA [Suspect]
     Active Substance: APREMILAST
     Route: 065
  157. OTEZLA [Suspect]
     Active Substance: APREMILAST
     Dosage: 6.0 MG, QD
     Route: 048
  158. OTEZLA [Suspect]
     Active Substance: APREMILAST
     Indication: Product used for unknown indication
     Dosage: 6.0 MG, QD
     Route: 065
  159. OXYCODONE TEREPHTHALATE [Suspect]
     Active Substance: OXYCODONE TEREPHTHALATE
     Indication: Product used for unknown indication
     Route: 065
  160. PREGABALIN [Suspect]
     Active Substance: PREGABALIN
     Indication: Product used for unknown indication
     Route: 065
  161. PANTOPRAZOLE SODIUM ANHYDROUS [Suspect]
     Active Substance: PANTOPRAZOLE SODIUM ANHYDROUS
     Indication: Product used for unknown indication
     Route: 016
  162. PANTOPRAZOLE SODIUM ANHYDROUS [Suspect]
     Active Substance: PANTOPRAZOLE SODIUM ANHYDROUS
     Route: 016
  163. PARA-AMINOSALICYLIC ACID [Suspect]
     Active Substance: AMINOSALICYLIC ACID
     Indication: Product used for unknown indication
     Route: 065
  164. PHTHALYLSULFATHIAZOLE [Suspect]
     Active Substance: PHTHALYLSULFATHIAZOLE
     Dosage: 1000 MG, QD
     Route: 048
  165. PHTHALYLSULFATHIAZOLE [Suspect]
     Active Substance: PHTHALYLSULFATHIAZOLE
     Dosage: 1000 MG, QD
     Route: 048
  166. PHTHALYLSULFATHIAZOLE [Suspect]
     Active Substance: PHTHALYLSULFATHIAZOLE
     Dosage: 2000 MG, QD
     Route: 048
  167. PHTHALYLSULFATHIAZOLE [Suspect]
     Active Substance: PHTHALYLSULFATHIAZOLE
     Dosage: 2000 MG, QD
     Route: 048
  168. PHTHALYLSULFATHIAZOLE [Suspect]
     Active Substance: PHTHALYLSULFATHIAZOLE
     Dosage: 2000 MG, QD
     Route: 058
  169. PHTHALYLSULFATHIAZOLE [Suspect]
     Active Substance: PHTHALYLSULFATHIAZOLE
     Indication: Product used for unknown indication
     Route: 065
  170. PHTHALYLSULFATHIAZOLE [Suspect]
     Active Substance: PHTHALYLSULFATHIAZOLE
     Route: 048
  171. PHTHALYLSULFATHIAZOLE [Suspect]
     Active Substance: PHTHALYLSULFATHIAZOLE
     Route: 016
  172. PREDNISONE [Suspect]
     Active Substance: PREDNISONE
     Route: 065
  173. PREDNISONE [Suspect]
     Active Substance: PREDNISONE
     Route: 048
  174. PREDNISONE [Suspect]
     Active Substance: PREDNISONE
     Route: 048
  175. PREDNISONE [Suspect]
     Active Substance: PREDNISONE
     Route: 065
  176. PREDNISONE [Suspect]
     Active Substance: PREDNISONE
     Route: 065
  177. PREDNISONE [Suspect]
     Active Substance: PREDNISONE
     Route: 048
  178. PREDNISONE [Suspect]
     Active Substance: PREDNISONE
     Indication: Product used for unknown indication
     Route: 048
  179. PSEUDOEPHEDRINE [Suspect]
     Active Substance: PSEUDOEPHEDRINE
     Indication: Product used for unknown indication
     Route: 065
  180. QUETIAPINE FUMARATE [Suspect]
     Active Substance: QUETIAPINE FUMARATE
     Indication: Product used for unknown indication
     Route: 065
  181. ACETAMINOPHEN\CODEINE PHOSPHATE\METHOCARBAMOL [Suspect]
     Active Substance: ACETAMINOPHEN\CODEINE PHOSPHATE\METHOCARBAMOL
     Indication: Product used for unknown indication
     Route: 065
  182. DIETARY SUPPLEMENT\HERBALS [Suspect]
     Active Substance: DIETARY SUPPLEMENT\HERBALS
     Indication: Product used for unknown indication
     Route: 065
  183. SALICYLIC ACID [Suspect]
     Active Substance: SALICYLIC ACID
     Indication: Product used for unknown indication
     Route: 065
  184. SODIUM FLUORIDE [Suspect]
     Active Substance: SODIUM FLUORIDE
     Indication: Product used for unknown indication
     Route: 065
  185. SULFAMETHOXAZOLE\TRIMETHOPRIM [Suspect]
     Active Substance: SULFAMETHOXAZOLE\TRIMETHOPRIM
     Indication: Product used for unknown indication
     Route: 067
  186. SULFAMETHOXAZOLE\TRIMETHOPRIM [Suspect]
     Active Substance: SULFAMETHOXAZOLE\TRIMETHOPRIM
     Route: 067
  187. SULFASALAZINE [Suspect]
     Active Substance: SULFASALAZINE
     Route: 058
  188. SULFASALAZINE [Suspect]
     Active Substance: SULFASALAZINE
     Route: 058
  189. SULFASALAZINE [Suspect]
     Active Substance: SULFASALAZINE
     Route: 058
  190. SULFASALAZINE [Suspect]
     Active Substance: SULFASALAZINE
     Route: 058
  191. SULFASALAZINE [Suspect]
     Active Substance: SULFASALAZINE
     Dosage: 2000 MG, QD
     Route: 048
  192. SULFASALAZINE [Suspect]
     Active Substance: SULFASALAZINE
     Route: 058
  193. SULFASALAZINE [Suspect]
     Active Substance: SULFASALAZINE
     Indication: Product used for unknown indication
     Route: 058
  194. THYMOL [Suspect]
     Active Substance: THYMOL
     Route: 048
  195. THYMOL [Suspect]
     Active Substance: THYMOL
     Indication: Product used for unknown indication
     Route: 048
  196. TOCILIZUMAB [Suspect]
     Active Substance: TOCILIZUMAB
     Route: 042
  197. TOCILIZUMAB [Suspect]
     Active Substance: TOCILIZUMAB
     Route: 048
  198. TOCILIZUMAB [Suspect]
     Active Substance: TOCILIZUMAB
     Dosage: 2912.0 MG, QW
     Route: 042
  199. TOCILIZUMAB [Suspect]
     Active Substance: TOCILIZUMAB
     Route: 058
  200. TOCILIZUMAB [Suspect]
     Active Substance: TOCILIZUMAB
     Route: 058
  201. TOCILIZUMAB [Suspect]
     Active Substance: TOCILIZUMAB
     Route: 042
  202. TOCILIZUMAB [Suspect]
     Active Substance: TOCILIZUMAB
     Route: 058
  203. TOCILIZUMAB [Suspect]
     Active Substance: TOCILIZUMAB
     Route: 016
  204. TOCILIZUMAB [Suspect]
     Active Substance: TOCILIZUMAB
     Dosage: 752.0 MG, QW
     Route: 065
  205. TOCILIZUMAB [Suspect]
     Active Substance: TOCILIZUMAB
     Route: 042
  206. TOCILIZUMAB [Suspect]
     Active Substance: TOCILIZUMAB
     Route: 058
  207. TOCILIZUMAB [Suspect]
     Active Substance: TOCILIZUMAB
     Indication: Product used for unknown indication
     Route: 016
  208. TOCILIZUMAB [Suspect]
     Active Substance: TOCILIZUMAB
     Route: 016
  209. TOFACITINIB CITRATE [Suspect]
     Active Substance: TOFACITINIB CITRATE
     Indication: Product used for unknown indication
     Dosage: 10 MG, QD
     Route: 065
  210. TRAMADOL HYDROCHLORIDE [Suspect]
     Active Substance: TRAMADOL HYDROCHLORIDE
     Indication: Product used for unknown indication
     Route: 065
  211. TRIAMCINOLONE ACETONIDE [Suspect]
     Active Substance: TRIAMCINOLONE ACETONIDE
     Indication: Product used for unknown indication
     Route: 013
  212. TRICLOSAN [Suspect]
     Active Substance: TRICLOSAN
     Indication: Product used for unknown indication
     Route: 065
  213. TYROTHRICIN [Suspect]
     Active Substance: TYROTHRICIN
     Route: 048
  214. TYROTHRICIN [Suspect]
     Active Substance: TYROTHRICIN
     Indication: Product used for unknown indication
     Route: 048
  215. USTEKINUMAB [Suspect]
     Active Substance: USTEKINUMAB
     Indication: Product used for unknown indication
     Route: 042
  216. VITAMIN D3 [Suspect]
     Active Substance: CHOLECALCIFEROL
     Indication: Product used for unknown indication
     Route: 016
  217. VITAMIN D3 [Suspect]
     Active Substance: CHOLECALCIFEROL
     Route: 058
  218. XELJANZ [Suspect]
     Active Substance: TOFACITINIB CITRATE
     Indication: Product used for unknown indication
     Dosage: 10 MG, QD
     Route: 048
  219. XELJANZ [Suspect]
     Active Substance: TOFACITINIB CITRATE
     Route: 065

REACTIONS (9)
  - Glossodynia [Fatal]
  - Grip strength decreased [Fatal]
  - Headache [Fatal]
  - Helicobacter infection [Fatal]
  - Hepatic cirrhosis [Fatal]
  - Hepatic enzyme increased [Fatal]
  - Hip arthroplasty [Fatal]
  - Hypercholesterolaemia [Fatal]
  - Hypersensitivity [Fatal]
